FAERS Safety Report 12869368 (Version 21)
Quarter: 2018Q4

REPORT INFORMATION
  Report Type: Report from Study
  Country: DE (occurrence: DE)
  Receive Date: 20161021
  Receipt Date: 20181025
  Transmission Date: 20190204
  Serious: Yes (Life-Threatening, Hospitalization, Other)
  Sender: FDA-Public Use
  Company Number: PHHY2016DE115300

PATIENT
  Age: 9 Year
  Sex: Female
  Weight: 34 kg

DRUGS (26)
  1. DAUNORUBICIN [Concomitant]
     Active Substance: DAUNORUBICIN
     Indication: CHEMOTHERAPY
     Dosage: 30 MG/M2, QD
     Route: 065
     Dates: start: 20151228
  2. DOXORUBICIN [Concomitant]
     Active Substance: DOXORUBICIN
     Indication: PRODUCT USED FOR UNKNOWN INDICATION
     Dosage: 25 MG/M2, UNK
     Route: 065
     Dates: start: 20160805
  3. ARA-C [Concomitant]
     Active Substance: CYTARABINE
     Indication: PRODUCT USED FOR UNKNOWN INDICATION
     Dosage: 29 MG/M2, UNK
     Route: 065
     Dates: end: 20160213
  4. VINCRISTINE [Concomitant]
     Active Substance: VINCRISTINE
     Indication: PRODUCT USED FOR UNKNOWN INDICATION
     Dosage: 15 MG/M2, UNK
     Route: 065
     Dates: start: 20160805
  5. GLIVEC [Suspect]
     Active Substance: IMATINIB MESYLATE
     Indication: ACUTE LYMPHOCYTIC LEUKAEMIA
     Dosage: 300 MG, QD
     Route: 048
     Dates: start: 20150911
  6. SODIUM CHLORIDE. [Concomitant]
     Active Substance: SODIUM CHLORIDE
     Indication: PRODUCT USED FOR UNKNOWN INDICATION
     Dosage: 6 DF, QD (3X 2 TABLET)
     Route: 065
     Dates: start: 20150919, end: 20151027
  7. ALEXAN [Concomitant]
     Indication: PRODUCT USED FOR UNKNOWN INDICATION
     Dosage: 89 MG, UNK
     Route: 042
     Dates: start: 20161110, end: 20161113
  8. MTX [Concomitant]
     Active Substance: METHOTREXATE SODIUM
     Indication: CHEMOTHERAPY
     Dosage: 5 G/M2, QD
     Route: 065
     Dates: start: 20151223
  9. MAGNESIUM [Concomitant]
     Active Substance: MAGNESIUM
     Indication: PRODUCT USED FOR UNKNOWN INDICATION
     Dosage: 3 DF, QD
     Route: 065
     Dates: start: 20160408
  10. VITAMIN D3 [Concomitant]
     Active Substance: CHOLECALCIFEROL
     Indication: PRODUCT USED FOR UNKNOWN INDICATION
     Dosage: 1000 IU, BID (1X 2 DAILY)
     Route: 065
     Dates: start: 20160408
  11. VINDESINE [Concomitant]
     Active Substance: VINDESINE
     Indication: CHEMOTHERAPY
     Dosage: 3 MG/M2, QD
     Route: 065
     Dates: start: 20151229
  12. ASPARAGINASE [Concomitant]
     Active Substance: ASPARAGINASE
     Indication: PRODUCT USED FOR UNKNOWN INDICATION
     Dosage: 10000 E/M2
     Route: 065
     Dates: start: 20160805
  13. ASPARAGINASE [Concomitant]
     Active Substance: ASPARAGINASE
     Dosage: 10000 E/M2
     Route: 065
     Dates: start: 20160808
  14. ASPARAGINASE [Concomitant]
     Active Substance: ASPARAGINASE
     Dosage: 10000 E/M2
     Route: 065
     Dates: start: 20160812
  15. VP-16 [Concomitant]
     Active Substance: ETOPOSIDE
     Indication: PRODUCT USED FOR UNKNOWN INDICATION
     Dosage: 100 MG/M2, UNK
     Route: 065
     Dates: end: 20160216
  16. COTRIMOXAZOL [Concomitant]
     Active Substance: SULFAMETHOXAZOLE\TRIMETHOPRIM
     Indication: PRODUCT USED FOR UNKNOWN INDICATION
     Dosage: 160 MG, UNK (FR-SO)
     Route: 065
     Dates: start: 20150919
  17. CPM [Concomitant]
     Active Substance: CHLORPHENIRAMINE MALEATE
     Indication: PRODUCT USED FOR UNKNOWN INDICATION
     Dosage: 1180 MG, UNK
     Route: 042
     Dates: start: 20161108
  18. IFOSFAMIDE. [Concomitant]
     Active Substance: IFOSFAMIDE
     Indication: CHEMOTHERAPY
     Dosage: 800 MG/M2, UNK
     Route: 065
     Dates: start: 20151225, end: 20151228
  19. VINCRISTINE [Concomitant]
     Active Substance: VINCRISTINE
     Dosage: 15 MG/M2, UNK
     Route: 065
     Dates: start: 20160812
  20. KETANEST//KETAMINE HYDROCHLORIDE [Suspect]
     Active Substance: KETAMINE HYDROCHLORIDE
     Indication: PRODUCT USED FOR UNKNOWN INDICATION
     Dosage: UNK
     Route: 065
  21. DEXAMETHASONE. [Concomitant]
     Active Substance: DEXAMETHASONE
     Indication: PRODUCT USED FOR UNKNOWN INDICATION
     Dosage: 20 MG/M2, UNK
     Route: 065
     Dates: end: 20160216
  22. DOXORUBICIN [Concomitant]
     Active Substance: DOXORUBICIN
     Dosage: 25 MG/M2, UNK
     Route: 065
     Dates: start: 20160812
  23. KALINOR (POTASSIUM CHLORIDE) [Concomitant]
     Active Substance: POTASSIUM CHLORIDE
     Indication: PRODUCT USED FOR UNKNOWN INDICATION
     Dosage: 2 DF, QD
     Route: 065
     Dates: start: 20150919, end: 20160517
  24. MTX [Concomitant]
     Active Substance: METHOTREXATE SODIUM
     Dosage: 12 MG, UNK
     Route: 037
     Dates: start: 20161111
  25. OMEPRAZOL [Concomitant]
     Active Substance: OMEPRAZOLE
     Indication: PRODUCT USED FOR UNKNOWN INDICATION
     Dosage: 40 MG, QD (2X 20)
     Route: 065
     Dates: start: 20150919, end: 20151027
  26. SODIUM CHLORIDE. [Concomitant]
     Active Substance: SODIUM CHLORIDE
     Dosage: 6 DF, QD (3X 2 TABLET)
     Route: 065
     Dates: start: 20160808

REACTIONS (23)
  - Pyrexia [Recovered/Resolved]
  - Localised oedema [Unknown]
  - White blood cell count decreased [Unknown]
  - Nausea [Unknown]
  - Influenza like illness [Unknown]
  - Diarrhoea [Unknown]
  - Pyelocaliectasis [Unknown]
  - Pain [Recovered/Resolved]
  - Pain in extremity [Unknown]
  - Hypersensitivity [Unknown]
  - C-reactive protein increased [Recovered/Resolved]
  - Fungal oesophagitis [Unknown]
  - Abdominal pain [Recovered/Resolved]
  - Muscular weakness [Unknown]
  - Mucosal inflammation [Recovered/Resolved]
  - Platelet count decreased [Unknown]
  - Anaemia [Unknown]
  - Neutropenia [Not Recovered/Not Resolved]
  - Vomiting [Unknown]
  - Rash maculo-papular [Unknown]
  - Herpes pharyngitis [Recovered/Resolved]
  - Febrile neutropenia [Recovered/Resolved]
  - Drug hypersensitivity [Unknown]

NARRATIVE: CASE EVENT DATE: 20150919
